FAERS Safety Report 10706288 (Version 2)
Quarter: 2015Q1

REPORT INFORMATION
  Report Type: Report from Study
  Country: GB (occurrence: None)
  Receive Date: 20150109
  Receipt Date: 20150109
  Transmission Date: 20150721
  Serious: Yes (Death)
  Sender: FDA-Public Use
  Company Number: 2639701

PATIENT
  Age: 55 Year
  Sex: Male

DRUGS (3)
  1. CLOFARABINE [Suspect]
     Active Substance: CLOFARABINE
     Indication: ACUTE MYELOID LEUKAEMIA
     Dosage: UNKNOWN, UNKNOWN , UNKNOWN
     Dates: start: 20121124
  2. CYTARABINE. [Suspect]
     Active Substance: CYTARABINE
     Indication: ACUTE MYELOID LEUKAEMIA
     Dosage: UNKNOWN UNKNOWN , UNKNOWN
     Dates: start: 20121124
  3. DAUNORUBICIN [Suspect]
     Active Substance: DAUNORUBICIN
     Indication: ACUTE MYELOID LEUKAEMIA
     Dosage: UNKNOWN, UNKNOWN, UNKNOWN
     Dates: start: 20121124

REACTIONS (4)
  - Incorrect dose administered [None]
  - Procedural complication [None]
  - Transplant [None]
  - Cardiomyopathy [None]
